FAERS Safety Report 25912082 (Version 1)
Quarter: 2025Q4

REPORT INFORMATION
  Report Type: Spontaneous
  Country: EU (occurrence: EU)
  Receive Date: 20251013
  Receipt Date: 20251013
  Transmission Date: 20260118
  Serious: No
  Sender: BLUEPRINT MEDICINES
  Company Number: EU-Blueprint Medicines Corporation-2025-AER-02217

PATIENT
  Age: 62 Year
  Sex: Female

DRUGS (6)
  1. AVAPRITINIB [Suspect]
     Active Substance: AVAPRITINIB
     Indication: Indolent systemic mastocytosis
     Route: 065
     Dates: start: 202404
  2. AVAPRITINIB [Suspect]
     Active Substance: AVAPRITINIB
     Indication: Smouldering systemic mastocytosis
  3. ALPHA1H [Concomitant]
     Active Substance: ALPHA1H
     Indication: Product used for unknown indication
     Route: 065
  4. AH2 [Concomitant]
     Indication: Product used for unknown indication
     Route: 065
  5. SOTALOL HYDROCHLORIDE [Concomitant]
     Active Substance: SOTALOL HYDROCHLORIDE
     Indication: Product used for unknown indication
     Route: 065
  6. SERTRALINE [Concomitant]
     Active Substance: SERTRALINE HYDROCHLORIDE
     Indication: Product used for unknown indication
     Route: 065

REACTIONS (4)
  - Swelling face [Recovering/Resolving]
  - Peripheral swelling [Unknown]
  - Swelling of eyelid [Unknown]
  - Seborrhoeic keratosis [Unknown]

NARRATIVE: CASE EVENT DATE: 20240401
